FAERS Safety Report 5034030-6 (Version None)
Quarter: 2006Q2

REPORT INFORMATION
  Report Type: 
  Country: None (occurrence: None)
  Receive Date: 20060626
  Receipt Date: 20060531
  Transmission Date: 20061013
  Serious: Yes (Other)
  Sender: FDA-Public Use
  Company Number: GBWYE673531MAY06

PATIENT
  Sex: Female
  Weight: 70.4 kg

DRUGS (8)
  1. ENBREL [Suspect]
     Indication: DRUG USE FOR UNKNOWN INDICATION
     Route: 058
     Dates: start: 20050706
  2. TRAMADOL HCL [Concomitant]
     Route: 048
     Dates: start: 20040101
  3. SIMVASTATIN [Concomitant]
     Route: 048
  4. ACETYLSALICYLIC ACID SRT [Concomitant]
     Dosage: 75 MG, FREQUENCY UNSPECIFIED
     Route: 048
     Dates: start: 20040101
  5. SULFASALAZINE [Concomitant]
     Route: 048
     Dates: start: 19960101
  6. RAMIPRIL [Concomitant]
     Dosage: 10 MG, FREQUENCY UNSPECIFIED
     Route: 048
  7. METHOTREXATE [Concomitant]
     Route: 048
     Dates: start: 20040101
  8. FOLIC ACID [Concomitant]
     Dosage: 5 MG, FREQUENCY UNSPECIFIED
     Route: 048
     Dates: start: 20040101

REACTIONS (3)
  - DRUG INEFFECTIVE [None]
  - HYPOKINESIA [None]
  - MIGRAINE [None]
